FAERS Safety Report 17429549 (Version 1)
Quarter: 2020Q1

REPORT INFORMATION
  Report Type: Spontaneous
  Country: US (occurrence: US)
  Receive Date: 20200203
  Receipt Date: 20200203
  Transmission Date: 20200409
  Serious: No
  Sender: FDA-Public Use
  Company Number: None

PATIENT
  Age: 39 Year
  Sex: Female

DRUGS (1)
  1. GLATIRAMER ACETATE (12X1ML) [Suspect]
     Active Substance: GLATIRAMER ACETATE
     Indication: MULTIPLE SCLEROSIS
     Route: 058
     Dates: start: 20191028, end: 20200130

REACTIONS (4)
  - Injection site swelling [None]
  - Injection site pruritus [None]
  - Injection site pain [None]
  - Product substitution issue [None]

NARRATIVE: CASE EVENT DATE: 20191028
